FAERS Safety Report 8949611 (Version 5)
Quarter: 2012Q4

REPORT INFORMATION
  Report Type: 
  Country: CN (occurrence: CN)
  Receive Date: 20121206
  Receipt Date: 20121227
  Transmission Date: 20130627
  Serious: Yes (Hospitalization, Other)
  Sender: FDA-Public Use
  Company Number: PHHY2012CN109607

PATIENT
  Age: 42 Year
  Sex: Male

DRUGS (6)
  1. SEBIVO [Suspect]
     Indication: CHRONIC HEPATITIS B
     Dosage: 600 mg per day
     Route: 048
     Dates: start: 201203, end: 20121117
  2. ADEFOVIR DIPIVOXIL [Concomitant]
     Indication: CHRONIC HEPATITIS B
     Route: 048
     Dates: start: 20121002
  3. ENTECAVIR [Concomitant]
  4. LORATADINE [Concomitant]
     Indication: ANXIETY DISORDER
  5. LORAZEPAM [Concomitant]
     Indication: ANXIETY DISORDER
     Route: 048
  6. LAMIVUDINE [Concomitant]
     Indication: CHRONIC HEPATITIS B
     Dates: start: 20121117, end: 20121120

REACTIONS (26)
  - Blood uric acid increased [Unknown]
  - Dyspepsia [Unknown]
  - Hepatic steatosis [Unknown]
  - Aspartate aminotransferase increased [Unknown]
  - Alanine aminotransferase increased [Unknown]
  - Myalgia [Recovering/Resolving]
  - Muscular weakness [Not Recovered/Not Resolved]
  - Rhabdomyolysis [Unknown]
  - Myositis [Unknown]
  - Blood lactate dehydrogenase increased [Unknown]
  - Blood lactic acid increased [Unknown]
  - Myoglobin blood increased [Unknown]
  - Blood creatine phosphokinase increased [Unknown]
  - Myoglobinuria [Unknown]
  - Musculoskeletal stiffness [Unknown]
  - Pain in extremity [Not Recovered/Not Resolved]
  - Myoglobinaemia [Unknown]
  - Decreased appetite [Unknown]
  - Weight decreased [Unknown]
  - Stress [Unknown]
  - Asthenia [Unknown]
  - Chest pain [Unknown]
  - Hypoaesthesia [Not Recovered/Not Resolved]
  - Fatigue [Unknown]
  - Nausea [Unknown]
  - Pain [Not Recovered/Not Resolved]
